FAERS Safety Report 4881259-3 (Version None)
Quarter: 2005Q4

REPORT INFORMATION
  Report Type: 
  Country: None (occurrence: None)
  Receive Date: 20051212
  Receipt Date: 20051024
  Transmission Date: 20060501
  Serious: Yes (Hospitalization)
  Sender: FDA-Public Use
  Company Number: 2005-02193

PATIENT
  Age: 74 Year
  Sex: Female
  Weight: 63 kg

DRUGS (1)
  1. VELCADE [Suspect]
     Indication: MULTIPLE MYELOMA
     Dosage: 1.30 MG/M2, WEEK, IV BOLUS
     Route: 040
     Dates: start: 20050809, end: 20050906

REACTIONS (3)
  - DEHYDRATION [None]
  - DIARRHOEA [None]
  - RIB FRACTURE [None]
